FAERS Safety Report 21830871 (Version 2)
Quarter: 2023Q1

REPORT INFORMATION
  Report Type: Spontaneous
  Country: IT (occurrence: IT)
  Receive Date: 20230106
  Receipt Date: 20230224
  Transmission Date: 20230417
  Serious: Yes (Hospitalization, Other)
  Sender: FDA-Public Use
  Company Number: IT-GLAXOSMITHKLINE-IT2022EME178355

PATIENT

DRUGS (4)
  1. FLUTICASONE FUROATE\VILANTEROL TRIFENATATE [Suspect]
     Active Substance: FLUTICASONE FUROATE\VILANTEROL TRIFENATATE
     Indication: Cough
     Dosage: UNK (184/22)
     Dates: end: 2022
  2. FLUTICASONE FUROATE\VILANTEROL TRIFENATATE [Suspect]
     Active Substance: FLUTICASONE FUROATE\VILANTEROL TRIFENATATE
     Indication: Cough
     Dosage: UNK (92/22)
  3. LAMICTAL [Suspect]
     Active Substance: LAMOTRIGINE
     Indication: Product used for unknown indication
     Dosage: UNK
  4. VALPROATE SODIUM [Suspect]
     Active Substance: VALPROATE SODIUM
     Indication: Product used for unknown indication
     Dosage: UNK

REACTIONS (39)
  - Hospitalisation [Unknown]
  - Mental disorder [Unknown]
  - Hypersensitivity [Not Recovered/Not Resolved]
  - Bursitis [Not Recovered/Not Resolved]
  - Condition aggravated [Unknown]
  - Malaise [Unknown]
  - Hypertension [Unknown]
  - Heart rate increased [Unknown]
  - Blood sodium decreased [Unknown]
  - Anhedonia [Unknown]
  - Hallucination [Unknown]
  - Incontinence [Unknown]
  - Joint swelling [Unknown]
  - Multiple allergies [Unknown]
  - Pruritus [Unknown]
  - Ill-defined disorder [Unknown]
  - Hepatic steatosis [Unknown]
  - Hepatic cirrhosis [Unknown]
  - Mood altered [Unknown]
  - Crying [Unknown]
  - Confusional state [Unknown]
  - Amnesia [Unknown]
  - Cognitive disorder [Unknown]
  - Pain [Not Recovered/Not Resolved]
  - Seizure [Unknown]
  - Epilepsy [Unknown]
  - Ataxia [Unknown]
  - Anxiety [Recovered/Resolved]
  - Agitation [Recovered/Resolved]
  - Back pain [Not Recovered/Not Resolved]
  - Headache [Unknown]
  - Panic disorder [Recovered/Resolved]
  - Bronchitis [Unknown]
  - Dyspnoea [Unknown]
  - Dermatitis [Unknown]
  - Insomnia [Unknown]
  - Expired product administered [Unknown]
  - Product prescribing error [Unknown]
  - Product use in unapproved indication [Unknown]

NARRATIVE: CASE EVENT DATE: 20220101
